FAERS Safety Report 7224812-4 (Version None)
Quarter: 2011Q1

REPORT INFORMATION
  Report Type: 
  Country: None (occurrence: None)
  Receive Date: 20110104
  Receipt Date: 20101220
  Transmission Date: 20110831
  Serious: Yes (Hospitalization)
  Sender: FDA-Public Use
  Company Number: DSU-2010-07064

PATIENT
  Age: 59 Year
  Sex: Male
  Weight: 101.1521 kg

DRUGS (3)
  1. VERAPAMIL [Suspect]
     Indication: HYPERTENSION
     Dosage: QD, PER ORAL
     Route: 048
     Dates: start: 20101214, end: 20101216
  2. GLIPIZIDE [Concomitant]
  3. BENICAR [Suspect]
     Indication: HYPERTENSION
     Dosage: 20 MG (20 MG, QD), PER ORAL
     Route: 048
     Dates: start: 20101214, end: 20101216

REACTIONS (1)
  - DRUG INEFFECTIVE [None]
